FAERS Safety Report 5064701-7 (Version None)
Quarter: 2006Q3

REPORT INFORMATION
  Report Type: 
  Country: None (occurrence: None)
  Receive Date: 20060728
  Receipt Date: 20060725
  Transmission Date: 20061208
  Serious: Yes (Hospitalization)
  Sender: FDA-Public Use
  Company Number: FR-GLAXOSMITHKLINE-B0432004A

PATIENT
  Age: 47 Year
  Sex: Male

DRUGS (1)
  1. CLAMOXYL [Suspect]
     Dosage: 500MG SINGLE DOSE
     Route: 048
     Dates: start: 20060522, end: 20060522

REACTIONS (4)
  - ANAPHYLACTIC REACTION [None]
  - DERMATITIS ALLERGIC [None]
  - LOSS OF CONSCIOUSNESS [None]
  - MALAISE [None]
